FAERS Safety Report 4677981-4 (Version None)
Quarter: 2005Q2

REPORT INFORMATION
  Report Type: 
  Country: None (occurrence: None)
  Receive Date: 20050531
  Receipt Date: 20040906
  Transmission Date: 20051028
  Serious: Yes (Hospitalization, Other)
  Sender: FDA-Public Use
  Company Number: 2004AP04724

PATIENT
  Age: 795 Month
  Sex: Female

DRUGS (3)
  1. ARIMIDEX [Suspect]
     Indication: BREAST CANCER
     Route: 048
     Dates: start: 20030101
  2. NORVASC [Concomitant]
     Indication: HYPERTENSION
     Route: 048
     Dates: start: 20010101
  3. GLIMICRON [Concomitant]
     Indication: DIABETES MELLITUS
     Route: 048
     Dates: start: 20031001

REACTIONS (2)
  - NEPHROTIC SYNDROME [None]
  - RENAL DISORDER [None]
